FAERS Safety Report 4565089-8 (Version None)
Quarter: 2005Q1

REPORT INFORMATION
  Report Type: 
  Country: None (occurrence: None)
  Receive Date: 20050126
  Receipt Date: 20050114
  Transmission Date: 20050727
  Serious: No
  Sender: FDA-Public Use
  Company Number: 2005AC00093

PATIENT
  Sex: Male

DRUGS (1)
  1. CASODEX [Suspect]
     Dosage: 150 MG

REACTIONS (2)
  - HAEMATURIA [None]
  - NEPHROTIC SYNDROME [None]
